FAERS Safety Report 25183128 (Version 2)
Quarter: 2025Q4

REPORT INFORMATION
  Report Type: Spontaneous
  Country: US (occurrence: US)
  Receive Date: 20250410
  Receipt Date: 20251019
  Transmission Date: 20260118
  Serious: No
  Sender: ROCHE
  Company Number: US-ROCHE-10000253185

PATIENT
  Sex: Female

DRUGS (2)
  1. XOLAIR PFS [Suspect]
     Active Substance: OMALIZUMAB
     Indication: Asthma
     Dosage: ONGOING, STRENGTH:150MG/ML
     Route: 058
     Dates: start: 201808
  2. XOLAIR PFS [Suspect]
     Active Substance: OMALIZUMAB
     Indication: Asthma
     Dosage: ONGOING, STRENGTH:75MG/0.5ML
     Route: 058
     Dates: start: 201808

REACTIONS (2)
  - Off label use [Unknown]
  - No adverse event [Unknown]
